FAERS Safety Report 6381430-8 (Version None)
Quarter: 2009Q3

REPORT INFORMATION
  Report Type: 
  Country: None (occurrence: None)
  Receive Date: 20090929
  Receipt Date: 20090916
  Transmission Date: 20100115
  Serious: Yes (Hospitalization)
  Sender: FDA-Public Use
  Company Number: AU-AMGEN-QUU348629

PATIENT
  Sex: Female
  Weight: 65 kg

DRUGS (5)
  1. NEULASTA [Suspect]
     Indication: CHEMOTHERAPY
     Route: 058
     Dates: start: 20090307
  2. NEUPOGEN [Suspect]
     Indication: CHEMOTHERAPY
     Route: 058
     Dates: start: 20090418, end: 20090428
  3. TAXOTERE [Concomitant]
     Dates: start: 20090306
  4. ADRIAMYCIN PFS [Concomitant]
     Dates: start: 20090306
  5. CYCLOPHOSPHAMIDE [Concomitant]
     Dates: start: 20090306

REACTIONS (2)
  - FEBRILE NEUTROPENIA [None]
  - NEUTROPENIC SEPSIS [None]
